FAERS Safety Report 18764324 (Version 3)
Quarter: 2021Q4

REPORT INFORMATION
  Report Type: Spontaneous
  Country: GB (occurrence: GB)
  Receive Date: 20210120
  Receipt Date: 20211012
  Transmission Date: 20220304
  Serious: Yes (Other)
  Sender: FDA-Public Use
  Company Number: None

PATIENT
  Age: 66 Year
  Sex: Female
  Weight: 65.31 kg

DRUGS (2)
  1. SERTRALINE [Suspect]
     Active Substance: SERTRALINE HYDROCHLORIDE
     Indication: Anxiety
     Dosage: 50 MILLIGRAM
     Route: 048
     Dates: start: 20201215
  2. SERTRALINE [Suspect]
     Active Substance: SERTRALINE HYDROCHLORIDE
     Indication: Depressed mood

REACTIONS (6)
  - Feeling hot [Recovered/Resolved with Sequelae]
  - Sleep disorder [Unknown]
  - Stress [Unknown]
  - Middle insomnia [Recovered/Resolved with Sequelae]
  - Hyperhidrosis [Recovered/Resolved with Sequelae]
  - Body temperature increased [Unknown]

NARRATIVE: CASE EVENT DATE: 20201216
